FAERS Safety Report 4662690-8 (Version None)
Quarter: 2005Q2

REPORT INFORMATION
  Report Type: 
  Country: None (occurrence: None)
  Receive Date: 20050516
  Receipt Date: 20050506
  Transmission Date: 20051028
  Serious: Yes (Other)
  Sender: FDA-Public Use
  Company Number: US-GLAXOSMITHKLINE-A0557567A

PATIENT
  Age: 17 Year
  Sex: Female

DRUGS (5)
  1. WELLBUTRIN [Suspect]
     Dosage: 300MG PER DAY
     Route: 048
     Dates: start: 20050407, end: 20050426
  2. SEROQUEL [Concomitant]
  3. PAXIL CR [Concomitant]
  4. YASMIN [Concomitant]
  5. MULTI-VITAMIN [Concomitant]

REACTIONS (5)
  - ANGER [None]
  - DEPRESSION [None]
  - DRUG INEFFECTIVE [None]
  - PARANOIA [None]
  - SUICIDAL IDEATION [None]
